FAERS Safety Report 12675513 (Version 1)
Quarter: 2016Q3

REPORT INFORMATION
  Report Type: Spontaneous
  Country: GB (occurrence: GB)
  Receive Date: 20160823
  Receipt Date: 20160823
  Transmission Date: 20161109
  Serious: Yes (Life-Threatening, Hospitalization)
  Sender: FDA-Public Use
  Company Number: GB-CIPLA LTD.-2016GB17296

PATIENT

DRUGS (24)
  1. FILGRASTIM [Concomitant]
     Active Substance: FILGRASTIM
     Dosage: 300, DOSAGE FORM: UNSPECIFIED
     Route: 058
     Dates: start: 20141105, end: 20150413
  2. ONDANSETRON [Concomitant]
     Active Substance: ONDANSETRON
     Dosage: 8 MG, DOSAGE FORM: UNSPECIFIED
     Route: 048
     Dates: start: 20141019, end: 20141231
  3. PARACETAMOL [Concomitant]
     Active Substance: ACETAMINOPHEN
     Dosage: 1 G, DOSAGE FORM: UNSPECIFIED
     Route: 048
     Dates: start: 20141105, end: 20141124
  4. TRASTUZUMAB [Concomitant]
     Active Substance: TRASTUZUMAB
     Indication: HER-2 POSITIVE BREAST CANCER
     Dosage: 8 MG/KG, DOSAGE FORM: UNSPECIFIED, DAY 1 OF CYCLE 1
     Route: 042
     Dates: start: 20150129
  5. CODEINE PHOSPHATE [Concomitant]
     Active Substance: CODEINE PHOSPHATE
     Indication: HEADACHE
     Dosage: 30 MG, DOSAGE FORM: UNSPECIFIED
     Route: 048
     Dates: start: 20141125, end: 20150603
  6. DEXAMETHASONE. [Concomitant]
     Active Substance: DEXAMETHASONE
     Dosage: 8 MG, DOSAGE FORM: UNSPECIFIED
     Route: 048
     Dates: start: 20150129
  7. DEXAMETHASONE. [Concomitant]
     Active Substance: DEXAMETHASONE
     Dosage: 8 MG, DOSAGE FORM: UNSPECIFIED
     Route: 042
     Dates: start: 20141029, end: 20141231
  8. PERTUZUMAB [Concomitant]
     Active Substance: PERTUZUMAB
     Indication: HER-2 POSITIVE BREAST CANCER
     Dosage: 840 MG, DOSAGE FORM: UNSPECIFIED, DAY 1 OF CYCLE 1ONLY
     Route: 042
     Dates: start: 20150129
  9. EPIRUBICIN [Suspect]
     Active Substance: EPIRUBICIN
     Dosage: 170 MG, DOSAGE FORM: UNSPECIFIED, 100 MG/M2
     Route: 042
     Dates: start: 20141029
  10. IBUPROFEN. [Concomitant]
     Active Substance: IBUPROFEN
     Dosage: 200 MG, DOSAGE FORM: UNSPECIFIED
     Route: 048
     Dates: start: 20141110, end: 20160119
  11. LOPERAMIDE [Concomitant]
     Active Substance: LOPERAMIDE
     Indication: PRODUCT USED FOR UNKNOWN INDICATION
     Dosage: 2 MG, DOSAGE FORM: UNSPECIFIED
     Route: 048
     Dates: start: 20141223
  12. ONDANSETRON [Concomitant]
     Active Substance: ONDANSETRON
     Dosage: 8 MG, DOSAGE FORM: UNSPECIFIED
     Route: 048
     Dates: start: 20141030, end: 20150130
  13. POTASSIUM BICARBONATE. [Concomitant]
     Active Substance: POTASSIUM BICARBONATE
     Indication: BLOOD POTASSIUM DECREASED
     Dosage: UNK
     Route: 048
     Dates: start: 20141223, end: 20141226
  14. CYCLOPHOSPHAMIDE. [Suspect]
     Active Substance: CYCLOPHOSPHAMIDE
     Indication: HER-2 POSITIVE BREAST CANCER
     Dosage: 1020 MG, UNK, DOSAGE FORM: UNSPECIFIED 600 MG/M2
     Route: 042
     Dates: start: 20141029
  15. CYCLOPHOSPHAMIDE. [Suspect]
     Active Substance: CYCLOPHOSPHAMIDE
     Dosage: UNK, UNSPECIFIED
     Route: 042
  16. TRASTUZUMAB [Concomitant]
     Active Substance: TRASTUZUMAB
     Dosage: 6 MG/KG, ONCE IN 3 WEEKS, DOSAGE FORM: UNSPECIFIED
     Route: 042
  17. DOMPERIDONE [Suspect]
     Active Substance: DOMPERIDONE
     Indication: PRODUCT USED FOR UNKNOWN INDICATION
     Dosage: 10 MG, DOSAGE FORM: UNSPECIFIED
     Route: 048
     Dates: start: 20141030, end: 20150405
  18. DEXAMETHASONE. [Concomitant]
     Active Substance: DEXAMETHASONE
     Dosage: 4 MG, DOSAGE FORM: UNSPECIFIED
     Route: 048
     Dates: start: 20141030, end: 20150104
  19. DOCETAXEL. [Concomitant]
     Active Substance: DOCETAXEL
     Dosage: 75 MG/M2, DOSAGE FORM: UNSPECIFIED, DAY 1 OF CYCLE 1
     Route: 042
     Dates: start: 20150130
  20. PARACETAMOL [Concomitant]
     Active Substance: ACETAMINOPHEN
     Indication: HEADACHE
     Dosage: 500 MG, DOSAGE FORM: UNSPECIFIED
     Route: 048
     Dates: start: 20141125, end: 20150603
  21. PERTUZUMAB [Concomitant]
     Active Substance: PERTUZUMAB
     Dosage: 420 MG, ONCE IN 3 WEEKS, DOASGE FORM: UNSPECIFIED
     Route: 042
  22. EPIRUBICIN [Suspect]
     Active Substance: EPIRUBICIN
     Indication: HER-2 POSITIVE BREAST CANCER
     Dosage: UNK, DOSAGE FORM: UNSPECIFIED
     Route: 042
  23. FLUOROURACIL. [Suspect]
     Active Substance: FLUOROURACIL
     Indication: HER-2 POSITIVE BREAST CANCER
     Dosage: 850 MG, DOSAGE FORM: UNSPECIFIED, CYCLES 1-4, 500 MG/M2
     Route: 042
     Dates: start: 20141029
  24. DOCETAXEL. [Concomitant]
     Active Substance: DOCETAXEL
     Indication: HER-2 POSITIVE BREAST CANCER
     Dosage: 100 MG/M2, ONCE IN 3 WEEKS, DOSAGE FORM: UNSPECIFED
     Route: 042

REACTIONS (2)
  - Neutropenic sepsis [Recovered/Resolved]
  - Pyrexia [Recovered/Resolved]

NARRATIVE: CASE EVENT DATE: 20141130
